FAERS Safety Report 15883738 (Version 3)
Quarter: 2019Q3

REPORT INFORMATION
  Report Type: Report from Study
  Country: GB (occurrence: GB)
  Receive Date: 20190129
  Receipt Date: 20190813
  Transmission Date: 20191004
  Serious: Yes (Hospitalization, Other)
  Sender: FDA-Public Use
  Company Number: PHHY2018GB010931

PATIENT
  Age: 74 Year
  Sex: Female

DRUGS (3)
  1. ENTRESTO [Suspect]
     Active Substance: SACUBITRIL\VALSARTAN
     Dosage: 200 MG (SACUBITRIL 97 MG AND VALSARTAN 103 MG), BID
     Route: 048
     Dates: start: 20180928
  2. ENTRESTO [Suspect]
     Active Substance: SACUBITRIL\VALSARTAN
     Indication: CARDIAC FAILURE CHRONIC
     Dosage: 100 MG (49/51 MG), BID
     Route: 048
     Dates: start: 20171115, end: 20180509
  3. ENTRESTO [Suspect]
     Active Substance: SACUBITRIL\VALSARTAN
     Dosage: 200 MG (SACUBITRIL 97 MG AND VALSARTAN 103 MG), BID
     Route: 048
     Dates: start: 20180509, end: 20180919

REACTIONS (19)
  - Sepsis [Recovered/Resolved]
  - Appendicitis [Recovered/Resolved]
  - Cerebrovascular accident [Recovered/Resolved with Sequelae]
  - Confusional state [Recovered/Resolved]
  - Pyrexia [Unknown]
  - Upper gastrointestinal haemorrhage [Recovered/Resolved]
  - Facial paralysis [Recovered/Resolved with Sequelae]
  - Delirium [Recovered/Resolved]
  - Gastritis [Recovering/Resolving]
  - Abdominal pain lower [Recovered/Resolved]
  - Haematemesis [Recovered/Resolved]
  - Carotid artery stenosis [Recovered/Resolved with Sequelae]
  - Acute kidney injury [Recovered/Resolved]
  - Upper gastrointestinal haemorrhage [Recovered/Resolved]
  - Synovial cyst [Recovering/Resolving]
  - Cerebral infarction [Recovered/Resolved with Sequelae]
  - Fall [Recovered/Resolved with Sequelae]
  - Haematemesis [Recovered/Resolved]
  - Joint swelling [Not Recovered/Not Resolved]

NARRATIVE: CASE EVENT DATE: 20180509
